FAERS Safety Report 5011388-5 (Version None)
Quarter: 2006Q2

REPORT INFORMATION
  Report Type: 
  Country: None (occurrence: None)
  Receive Date: 20060404
  Receipt Date: 20060120
  Transmission Date: 20061013
  Serious: No
  Sender: FDA-Public Use
  Company Number: US200601001831

PATIENT
  Age: 71 Year
  Sex: Male
  Weight: 88.4 kg

DRUGS (2)
  1. CYMBALTA [Suspect]
     Dosage: 30 MG; SEE IMAGE
     Dates: start: 20050805, end: 20051101
  2. CYMBALTA [Suspect]
     Dosage: 30 MG; SEE IMAGE
     Dates: start: 20051101

REACTIONS (1)
  - DYSKINESIA [None]
